FAERS Safety Report 8249925-X (Version None)
Quarter: 2012Q1

REPORT INFORMATION
  Report Type: 
  Country: None (occurrence: None)
  Receive Date: 20120327
  Receipt Date: 20120319
  Transmission Date: 20120608
  Serious: Yes (Other)
  Sender: FDA-Public Use
  Company Number: 2012SP015026

PATIENT
  Age: 38 Year
  Sex: Male

DRUGS (1)
  1. ROCURONIUM BROMIDE [Suspect]
     Indication: NEUROMUSCULAR BLOCKADE
     Dosage: 0.6 MG/KG;IV
     Route: 042
     Dates: start: 20100126, end: 20100126

REACTIONS (3)
  - DRUG INEFFECTIVE [None]
  - ENDOTRACHEAL INTUBATION COMPLICATION [None]
  - COUGH [None]
